FAERS Safety Report 17157487 (Version 1)
Quarter: 2019Q4

REPORT INFORMATION
  Report Type: Spontaneous
  Country: US (occurrence: US)
  Receive Date: 20191216
  Receipt Date: 20191216
  Transmission Date: 20200122
  Serious: No
  Sender: FDA-Public Use
  Company Number: US-ASTRAZENECA-2019SF77157

PATIENT
  Sex: Female
  Weight: 6.8 kg

DRUGS (5)
  1. SYNAGIS [Suspect]
     Active Substance: PALIVIZUMAB
     Indication: DEPENDENCE ON OXYGEN THERAPY
     Route: 030
  2. OMEPRAZOLE. [Concomitant]
     Active Substance: OMEPRAZOLE
     Dosage: UNKNOWN
     Route: 065
  3. SYNAGIS [Suspect]
     Active Substance: PALIVIZUMAB
     Indication: GASTROINTESTINAL DISORDER
     Route: 030
  4. ALBUTEROL. [Concomitant]
     Active Substance: ALBUTEROL
  5. ERYTHROMYCIN/SULFISOXAZOL [Concomitant]

REACTIONS (2)
  - Bronchitis [Unknown]
  - Rash [Unknown]
